FAERS Safety Report 5300078-7 (Version None)
Quarter: 2007Q2

REPORT INFORMATION
  Report Type: 
  Country: None (occurrence: None)
  Receive Date: 20070410
  Receipt Date: 20070326
  Transmission Date: 20071010
  Serious: Yes (Hospitalization)
  Sender: FDA-Public Use
  Company Number: TPG2007A00246

PATIENT
  Age: 68 Year
  Sex: Male

DRUGS (6)
  1. ACTOS [Suspect]
     Indication: INSULIN-REQUIRING TYPE II DIABETES MELLITUS
     Dosage: 30 MG (UNK., UNKNOWN) PER ORAL
     Route: 048
     Dates: start: 20070220, end: 20070223
  2. NITRENDIPINE (NITRENDIPINE) [Concomitant]
  3. ENALAPRIL MALEATE [Concomitant]
  4. METFORMIN HCL [Concomitant]
  5. ACTRAPID (INSULIN HUMAN) [Concomitant]
  6. INSUMAN BASAL (INSULIN HUMAN INJECTION, ISOPHANE) [Concomitant]

REACTIONS (5)
  - CARDIAC FAILURE [None]
  - CHOLESTASIS [None]
  - DIABETES MELLITUS INADEQUATE CONTROL [None]
  - ESCHERICHIA INFECTION [None]
  - LIVER FUNCTION TEST ABNORMAL [None]
